FAERS Safety Report 10136474 (Version 1)
Quarter: 2014Q2

REPORT INFORMATION
  Report Type: Spontaneous
  Country: US (occurrence: None)
  Receive Date: 20140425
  Receipt Date: 20140425
  Transmission Date: 20141212
  Serious: Yes (Hospitalization)
  Sender: FDA-Public Use
  Company Number: UTC-047404

PATIENT
  Age: 45 Year
  Sex: Female
  Weight: 82.55 kg

DRUGS (4)
  1. REMODULIN [Suspect]
     Indication: COR PULMONALE CHRONIC
     Dosage: 73.44 UG/KG (0.051 UG/KG, 1 IN 1 MIN), INTRAVENOUS DRIP
     Route: 041
     Dates: start: 20100414
  2. WARFARIN (WARFARIN) [Concomitant]
  3. ADCIRCA (TADALAFIL) [Concomitant]
  4. TRACLEER (BOSENTAN) [Concomitant]

REACTIONS (4)
  - Cardiac failure congestive [None]
  - Pneumonia viral [None]
  - Sinusitis [None]
  - Dyspepsia [None]
